FAERS Safety Report 10787297 (Version 3)
Quarter: 2015Q1

REPORT INFORMATION
  Report Type: Report from Study
  Country: US (occurrence: US)
  Receive Date: 20150211
  Receipt Date: 20150305
  Transmission Date: 20150721
  Serious: Yes (Hospitalization)
  Sender: FDA-Public Use
  Company Number: US-009507513-1502USA001387

PATIENT
  Age: 5 Year
  Sex: Female
  Weight: 18.1 kg

DRUGS (2)
  1. PEGINTRON [Suspect]
     Active Substance: PEGINTERFERON ALFA-2B
     Indication: CRANIOPHARYNGIOMA
     Dosage: UNK
     Dates: start: 20141211
  2. PEGINTRON [Suspect]
     Active Substance: PEGINTERFERON ALFA-2B
     Dosage: TOTAL DOSE: 36 MICROGRAM, IN COURSE 2
     Dates: start: 20150122, end: 20150129

REACTIONS (6)
  - Headache [Recovered/Resolved]
  - Tremor [Recovered/Resolved with Sequelae]
  - Dizziness [Recovered/Resolved]
  - Device related infection [Recovered/Resolved with Sequelae]
  - Hemiparesis [Recovered/Resolved with Sequelae]
  - Facial nerve disorder [Recovered/Resolved with Sequelae]

NARRATIVE: CASE EVENT DATE: 20150131
